FAERS Safety Report 12434684 (Version 2)
Quarter: 2016Q2

REPORT INFORMATION
  Report Type: Spontaneous
  Country: US (occurrence: US)
  Receive Date: 20160603
  Receipt Date: 20160613
  Transmission Date: 20160815
  Serious: Yes (Other)
  Sender: FDA-Public Use
  Company Number: US-CELGENEUS-USA-2016055296

PATIENT
  Sex: Male

DRUGS (6)
  1. DESONIDE. [Concomitant]
     Active Substance: DESONIDE
     Indication: PSORIASIS
     Route: 065
     Dates: start: 201408
  2. TAZORAC [Concomitant]
     Active Substance: TAZAROTENE
     Indication: PSORIASIS
     Route: 065
     Dates: start: 201205
  3. TACLAREXANT [Concomitant]
     Indication: PSORIASIS
     Route: 065
     Dates: start: 201104
  4. OTEZLA [Suspect]
     Active Substance: APREMILAST
     Indication: PRODUCT USED FOR UNKNOWN INDICATION
     Dosage: 60 MILLIGRAM
     Route: 048
  5. STELARA [Concomitant]
     Active Substance: USTEKINUMAB
     Indication: PSORIASIS
     Route: 065
     Dates: start: 201503
  6. TACLONEX [Concomitant]
     Active Substance: BETAMETHASONE DIPROPIONATE\CALCIPOTRIENE\CALCIPOTRIENE HYDRATE
     Indication: PSORIASIS
     Route: 065
     Dates: start: 201205

REACTIONS (1)
  - Back disorder [Unknown]
